FAERS Safety Report 9713478 (Version 2)
Quarter: 2014Q1

REPORT INFORMATION
  Report Type: Spontaneous
  Country: US (occurrence: US)
  Receive Date: 20131126
  Receipt Date: 20140110
  Transmission Date: 20141002
  Serious: Yes (Other)
  Sender: FDA-Public Use
  Company Number: US-TEVA-446588USA

PATIENT
  Age: 27 Year
  Sex: Female
  Weight: 54.93 kg

DRUGS (2)
  1. PARAGARD 380A [Suspect]
     Indication: CONTRACEPTION
     Route: 015
     Dates: start: 20131121, end: 20131121
  2. PRENATAL VITAMINS [Concomitant]

REACTIONS (1)
  - Uterine perforation [Recovered/Resolved]
